FAERS Safety Report 9155361 (Version 2)
Quarter: 2013Q2

REPORT INFORMATION
  Report Type: Report from Study
  Country: US (occurrence: US)
  Receive Date: 20130311
  Receipt Date: 20130611
  Transmission Date: 20140414
  Serious: Yes (Hospitalization)
  Sender: FDA-Public Use
  Company Number: US-SHIRE-ALL1-2013-01224

PATIENT
  Age: 9 Year
  Sex: Male
  Weight: 22.4 kg

DRUGS (12)
  1. IDURSULFASE [Suspect]
     Indication: MUCOPOLYSACCHARIDOSIS II
     Dosage: 24 MG, 1X/WEEK
     Dates: start: 20100324
  2. IDURSULFASE [Suspect]
     Dosage: 12 MG, 1X/WEEK
     Route: 041
     Dates: start: 20061031
  3. ACETAZOLAMIDE [Concomitant]
     Indication: HYDROCEPHALUS
     Dosage: 250 MG, 3X/DAY:TID
     Route: 048
     Dates: start: 20081128
  4. ACETAZOLAMIDE [Concomitant]
     Dosage: 125 MG, 2X/DAY:BID
     Route: 048
     Dates: start: 200809
  5. DIASTAT                            /00017001/ [Concomitant]
     Indication: NERVOUS SYSTEM DISORDER
     Dosage: 7.5 MG, AS REQ^D
     Route: 030
     Dates: start: 20081008
  6. FERROUS SULFATE [Concomitant]
     Indication: BLOOD IRON DECREASED
     Dosage: 300 MG, 1X/DAY:QD
     Route: 048
     Dates: start: 20081007
  7. MELATONIN [Concomitant]
     Indication: SLEEP DISORDER
     Dosage: UNK, UNKNOWN
     Route: 065
     Dates: start: 20080731
  8. AMPICILLIN [Concomitant]
     Indication: INFECTION
     Dosage: 5 ML, 3X/DAY:TID
     Route: 048
     Dates: start: 20080620
  9. AMPICILLIN [Concomitant]
     Dosage: 10 ML, 2X/DAY:BID
     Route: 048
     Dates: start: 20080122
  10. HEPARIN [Concomitant]
     Indication: PROPHYLAXIS
     Dosage: 500 IU, 1X/WEEK
     Route: 042
     Dates: start: 20070130
  11. XOPENEX [Concomitant]
     Indication: RESPIRATORY DISORDER
     Dosage: 0.31 MG, 1X/DAY:QD
     Route: 055
     Dates: start: 2005
  12. PULMICORT [Concomitant]
     Indication: RESPIRATORY DISORDER
     Dosage: 0.25 MG, 2X/DAY:BID
     Route: 055
     Dates: start: 2005

REACTIONS (3)
  - Respiratory distress [Recovered/Resolved with Sequelae]
  - Dehydration [Recovered/Resolved with Sequelae]
  - Otitis media acute [Recovered/Resolved with Sequelae]
